FAERS Safety Report 9160467 (Version 2)
Quarter: 2013Q2

REPORT INFORMATION
  Report Type: Spontaneous
  Country: KR (occurrence: None)
  Receive Date: 20130220
  Receipt Date: 20130515
  Transmission Date: 20140414
  Serious: Yes (Hospitalization, Other)
  Sender: FDA-Public Use
  Company Number: JP-2013-10326

PATIENT
  Age: 74 Year
  Sex: Female

DRUGS (6)
  1. CILOSTAZOL [Suspect]
     Indication: CORONARY ARTERY DISEASE
     Route: 048
  2. CILOSTAZOL [Suspect]
     Indication: CORONARY ARTERIAL STENT INSERTION
     Route: 048
  3. ASPIRIN (ACETYLSALICYLIC ACID) TABLET [Suspect]
     Indication: CORONARY ARTERY DISEASE
     Route: 048
  4. ASPIRIN (ACETYLSALICYLIC ACID) TABLET [Suspect]
     Indication: CORONARY ARTERIAL STENT INSERTION
     Route: 048
  5. CLOPIDOGREL (CLOPIDOGREL) TABLET [Suspect]
     Indication: CORONARY ARTERY DISEASE
     Route: 048
  6. CLOPIDOGREL (CLOPIDOGREL) TABLET [Suspect]
     Indication: CORONARY ARTERIAL STENT INSERTION
     Route: 048

REACTIONS (2)
  - Cardiac failure [None]
  - Hypophagia [None]
